FAERS Safety Report 10865033 (Version 1)
Quarter: 2015Q1

REPORT INFORMATION
  Report Type: Report from Study
  Country: US (occurrence: US)
  Receive Date: 20150224
  Receipt Date: 20150224
  Transmission Date: 20150721
  Serious: No
  Sender: FDA-Public Use
  Company Number: US-MYLANLABS-2014S1003382

PATIENT
  Sex: Male
  Weight: 90.72 kg

DRUGS (4)
  1. AMNESTEEM [Suspect]
     Active Substance: ISOTRETINOIN
     Dosage: 80 MG,QD
     Dates: start: 201312, end: 201401
  2. METHYLPHENIDATE [Concomitant]
     Active Substance: METHYLPHENIDATE
     Dosage: 36 MG,UNK
  3. AMNESTEEM [Suspect]
     Active Substance: ISOTRETINOIN
     Dosage: 40 MG,QD
     Dates: start: 201311, end: 201312
  4. AMNESTEEM [Suspect]
     Active Substance: ISOTRETINOIN
     Indication: ACNE CYSTIC

REACTIONS (2)
  - Irritability [Not Recovered/Not Resolved]
  - Physical assault [Not Recovered/Not Resolved]
